FAERS Safety Report 8207960-1 (Version None)
Quarter: 2012Q1

REPORT INFORMATION
  Report Type: 
  Country: None (occurrence: None)
  Receive Date: 20120314
  Receipt Date: 20120309
  Transmission Date: 20120608
  Serious: Yes (Other)
  Sender: FDA-Public Use
  Company Number: US-JNJFOC-20120306116

PATIENT
  Age: 37 Year
  Sex: Female
  Weight: 98.88 kg

DRUGS (1)
  1. PRECISE EXTRA STRENGTH PAIN RELIEVING CREAM [Suspect]
     Indication: ACCIDENTAL EXPOSURE
     Route: 047
     Dates: start: 20120308, end: 20120308

REACTIONS (2)
  - ACCIDENTAL EXPOSURE [None]
  - VISION BLURRED [None]
